FAERS Safety Report 8881023 (Version 1)
Quarter: 2012Q4

REPORT INFORMATION
  Report Type: 
  Country: US (occurrence: US)
  Receive Date: 20121101
  Receipt Date: 20121101
  Transmission Date: 20130627
  Serious: Yes (Other)
  Sender: FDA-Public Use
  Company Number: US-ARROW-2012-18233

PATIENT
  Age: 82 Year
  Sex: Female

DRUGS (1)
  1. DOXYCYCLINE HYCLATE [Suspect]
     Indication: URINARY TRACT INFECTION
     Dosage: 100 MBq, bid
     Route: 048

REACTIONS (1)
  - Gastrointestinal necrosis [Recovered/Resolved]
